FAERS Safety Report 5139471-4 (Version None)
Quarter: 2006Q4

REPORT INFORMATION
  Report Type: 
  Country: None (occurrence: None)
  Receive Date: 20061024
  Receipt Date: 20060913
  Transmission Date: 20070319
  Serious: Yes (Other)
  Sender: FDA-Public Use
  Company Number: 2006SP001887

PATIENT
  Age: 39 Year
  Sex: Female

DRUGS (7)
  1. PEG-INTRON [Suspect]
     Indication: HEPATITIS C
     Dosage: SC
     Route: 058
     Dates: start: 20060106, end: 20060801
  2. RIBAVIRIN [Suspect]
     Indication: HEPATITIS C
     Dosage: PO
     Route: 048
     Dates: start: 20060106, end: 20060801
  3. PROCRIT /00909301/ [Concomitant]
  4. POTASSIUM CHLORIDE (S-P) [Concomitant]
  5. TOPROL-XL [Concomitant]
  6. COUMADIN [Concomitant]
  7. LASIX [Concomitant]

REACTIONS (7)
  - CARDIAC FAILURE CONGESTIVE [None]
  - DEPRESSION [None]
  - HAEMOGLOBIN DECREASED [None]
  - INJECTION SITE SWELLING [None]
  - MEMORY IMPAIRMENT [None]
  - RASH ERYTHEMATOUS [None]
  - VOMITING [None]
